FAERS Safety Report 10573852 (Version 1)
Quarter: 2014Q4

REPORT INFORMATION
  Report Type: Spontaneous
  Country: US (occurrence: US)
  Receive Date: 20141110
  Receipt Date: 20141110
  Transmission Date: 20150529
  Serious: Yes (Death)
  Sender: FDA-Public Use
  Company Number: US-ASTELLAS-2014US017009

PATIENT
  Age: 63 Year
  Sex: Male

DRUGS (2)
  1. XTANDI [Suspect]
     Active Substance: ENZALUTAMIDE
     Indication: PROSTATE CANCER
     Route: 048
     Dates: start: 20141014, end: 20141025
  2. XTANDI [Suspect]
     Active Substance: ENZALUTAMIDE
     Indication: METASTASIS

REACTIONS (1)
  - Death [Fatal]

NARRATIVE: CASE EVENT DATE: 20141025
